FAERS Safety Report 5745187-3 (Version None)
Quarter: 2008Q2

REPORT INFORMATION
  Report Type: 
  Country: None (occurrence: None)
  Receive Date: 20080521
  Receipt Date: 20080521
  Transmission Date: 20081010
  Serious: Yes (Hospitalization, Disabling)
  Sender: FDA-Public Use
  Company Number: A0728956A

PATIENT

DRUGS (1)
  1. ALLI [Suspect]
     Indication: WEIGHT LOSS DIET
     Route: 048
     Dates: start: 20080201

REACTIONS (3)
  - ANAEMIA [None]
  - GASTRIC ULCER HELICOBACTER [None]
  - HAEMORRHAGE [None]
